FAERS Safety Report 5558195-2 (Version None)
Quarter: 2007Q4

REPORT INFORMATION
  Report Type: 
  Country: None (occurrence: None)
  Receive Date: 20071214
  Receipt Date: 20071204
  Transmission Date: 20080405
  Serious: Yes (Other)
  Sender: FDA-Public Use
  Company Number: US-ABBOTT-07P-163-0427273-00

PATIENT
  Age: 20 Month
  Sex: Male

DRUGS (3)
  1. VALPROATE SODIUM [Suspect]
     Indication: DRUG EXPOSURE DURING PREGNANCY
     Dosage: NOT REPORTED
  2. VALPROATE SODIUM [Suspect]
     Indication: PETIT MAL EPILEPSY
     Dosage: NOT REPORTED
  3. VALPROATE SODIUM [Suspect]
     Dosage: GRADUALLY INCREASED TO 60MG/KG/DAY

REACTIONS (1)
  - IIIRD NERVE DISORDER [None]
